FAERS Safety Report 6889854-7 (Version None)
Quarter: 2010Q3

REPORT INFORMATION
  Report Type: 
  Country: None (occurrence: None)
  Receive Date: 20100730
  Receipt Date: 20080604
  Transmission Date: 20110219
  Serious: No
  Sender: FDA-Public Use
  Company Number: US-PFIZER INC-2008032167

PATIENT
  Sex: Female

DRUGS (5)
  1. LIPITOR [Suspect]
  2. PRAVACHOL [Suspect]
  3. CRESTOR [Concomitant]
  4. ZETIA [Concomitant]
  5. ACETYLSALICYLIC ACID SRT [Concomitant]

REACTIONS (3)
  - ARTHRALGIA [None]
  - BLOOD CHOLESTEROL INCREASED [None]
  - MYALGIA [None]
